FAERS Safety Report 4525816-2 (Version None)
Quarter: 2004Q4

REPORT INFORMATION
  Report Type: 
  Country: None (occurrence: None)
  Receive Date: 20041116
  Receipt Date: 20040930
  Transmission Date: 20050328
  Serious: No
  Sender: FDA-Public Use
  Company Number: S04-USA-06336-01

PATIENT
  Age: 95 Year
  Sex: Female

DRUGS (2)
  1. NAMENDA [Suspect]
     Dates: start: 20040101
  2. ARICEPT [Concomitant]

REACTIONS (1)
  - GAIT DISTURBANCE [None]
